FAERS Safety Report 4525981-7 (Version None)
Quarter: 2004Q4

REPORT INFORMATION
  Report Type: 
  Country: None (occurrence: None)
  Receive Date: 20041214
  Receipt Date: 20041202
  Transmission Date: 20050328
  Serious: Yes (Death)
  Sender: FDA-Public Use
  Company Number: US-JNJFOC-20041201037

PATIENT
  Sex: Female

DRUGS (2)
  1. REMICADE [Suspect]
     Indication: RHEUMATOID ARTHRITIS
     Dosage: 2 DOSES
     Route: 042
  2. PREDNISONE [Concomitant]

REACTIONS (4)
  - ARRHYTHMIA [None]
  - DIFFUSE ALVEOLAR DAMAGE [None]
  - DISSEMINATED TUBERCULOSIS [None]
  - HYPOXIA [None]
